FAERS Safety Report 19642874 (Version 1)
Quarter: 2021Q3

REPORT INFORMATION
  Report Type: Report from Study
  Country: US (occurrence: US)
  Receive Date: 20210730
  Receipt Date: 20210730
  Transmission Date: 20211014
  Serious: Yes (Death, Other)
  Sender: FDA-Public Use
  Company Number: US-TEVA-2021-US-1937524

PATIENT

DRUGS (1)
  1. BENDAMUSTINE HYDROCHLORIDE. [Suspect]
     Active Substance: BENDAMUSTINE HYDROCHLORIDE
     Indication: NON-HODGKIN^S LYMPHOMA UNSPECIFIED HISTOLOGY INDOLENT
     Dosage: (6 CYCLES)
     Route: 042

REACTIONS (5)
  - Product use issue [Unknown]
  - Septic shock [Fatal]
  - Cardiomyopathy [Fatal]
  - Ischaemic cardiomyopathy [Fatal]
  - Acute myocardial infarction [Fatal]
